FAERS Safety Report 11985165 (Version 1)
Quarter: 2016Q1

REPORT INFORMATION
  Report Type: Spontaneous
  Country: BR (occurrence: BR)
  Receive Date: 20160201
  Receipt Date: 20160201
  Transmission Date: 20160526
  Serious: Yes (Other)
  Sender: FDA-Public Use
  Company Number: BR-PFIZER INC-2016045282

PATIENT
  Age: 60 Year
  Sex: Female
  Weight: 84 kg

DRUGS (1)
  1. SUTENT [Suspect]
     Active Substance: SUNITINIB MALATE
     Indication: METASTATIC RENAL CELL CARCINOMA
     Dosage: 50 MG, CYCLE 4 PER 2
     Route: 048
     Dates: start: 20150926

REACTIONS (5)
  - Pain in extremity [Unknown]
  - Abasia [Unknown]
  - Asthenia [Not Recovered/Not Resolved]
  - Oral discomfort [Unknown]
  - Muscular weakness [Unknown]
